FAERS Safety Report 18770794 (Version 2)
Quarter: 2021Q1

REPORT INFORMATION
  Report Type: Report from Study
  Country: GB (occurrence: GB)
  Receive Date: 20210122
  Receipt Date: 20210210
  Transmission Date: 20210419
  Serious: Yes (Other)
  Sender: FDA-Public Use
  Company Number: GB-JNJFOC-20201215272

PATIENT
  Age: 4 Decade
  Sex: Male

DRUGS (3)
  1. STELARA [Suspect]
     Active Substance: USTEKINUMAB
     Indication: CROHN^S DISEASE
     Route: 058
     Dates: start: 20170503
  2. STELARA [Suspect]
     Active Substance: USTEKINUMAB
     Route: 058
     Dates: start: 20170628
  3. LANSOPRAZOLE. [Concomitant]
     Active Substance: LANSOPRAZOLE

REACTIONS (9)
  - Clostridium difficile infection [Not Recovered/Not Resolved]
  - Crohn^s disease [Unknown]
  - Anaemia [Unknown]
  - Fibromyalgia [Unknown]
  - Inappropriate schedule of product administration [Unknown]
  - Sepsis [Unknown]
  - Infection [Recovered/Resolved]
  - Intestinal operation [Unknown]
  - Off label use [Unknown]

NARRATIVE: CASE EVENT DATE: 20170503
